FAERS Safety Report 7660305-8 (Version None)
Quarter: 2011Q3

REPORT INFORMATION
  Report Type: 
  Country: None (occurrence: None)
  Receive Date: 20110805
  Receipt Date: 20110727
  Transmission Date: 20111222
  Serious: Yes (Disabling, Other)
  Sender: FDA-Public Use
  Company Number: PHHY2011US48145

PATIENT
  Sex: Female

DRUGS (2)
  1. VIVELLE-DOT [Suspect]
     Dosage: 0.1 MG, BIW
     Route: 062
  2. PROMETRIUM [Concomitant]
     Dosage: UNK UKN, UNK

REACTIONS (4)
  - FEELING OF DESPAIR [None]
  - FATIGUE [None]
  - PAIN [None]
  - FIBROMYALGIA [None]
